FAERS Safety Report 9337372 (Version 2)
Quarter: 2013Q2

REPORT INFORMATION
  Report Type: Spontaneous
  Country: BR (occurrence: BR)
  Receive Date: 20130607
  Receipt Date: 20130614
  Transmission Date: 20140414
  Serious: Yes (Other)
  Sender: FDA-Public Use
  Company Number: BR-GLAXOSMITHKLINE-B0897729A

PATIENT
  Age: 79 Year
  Sex: Female
  Weight: 37 kg

DRUGS (6)
  1. RYTHMOL [Suspect]
     Indication: ARRHYTHMIA
     Dosage: 150MG TWICE PER DAY
     Route: 048
     Dates: start: 2010
  2. SELOZOK [Concomitant]
     Indication: ARRHYTHMIA
     Dosage: 25MG TWICE PER DAY
     Route: 048
     Dates: start: 2012
  3. CILOSTAZOL [Concomitant]
     Indication: ARRHYTHMIA
     Dosage: 50MG TWICE PER DAY
     Route: 048
     Dates: start: 2010
  4. MACROGOL [Concomitant]
     Indication: CONSTIPATION
     Route: 048
  5. LACTULOSE [Concomitant]
     Indication: CONSTIPATION
     Dosage: 10MG TWICE PER DAY
     Route: 048
  6. PLANTAGO HERB EXTRACT [Concomitant]
     Indication: CONSTIPATION
     Route: 048
     Dates: start: 2010

REACTIONS (4)
  - Cardiac pacemaker insertion [Unknown]
  - Hormone level abnormal [Recovering/Resolving]
  - Osteoporosis [Not Recovered/Not Resolved]
  - Blood cholesterol abnormal [Recovered/Resolved]
